FAERS Safety Report 9987923 (Version 1)
Quarter: 2014Q1

REPORT INFORMATION
  Report Type: Spontaneous
  Country: DE (occurrence: DE)
  Receive Date: 20140307
  Receipt Date: 20140307
  Transmission Date: 20141002
  Serious: Yes (Other)
  Sender: FDA-Public Use
  Company Number: GXKR2014DE001157

PATIENT
  Sex: 0

DRUGS (2)
  1. BISOPROLOL FUMARATE W/HYDROCHLOROTHIAZIE [Suspect]
     Indication: HYPERTENSION
     Dosage: 1 DF, QD
     Dates: start: 201301
  2. CONTRACEPTIVES [Concomitant]

REACTIONS (3)
  - Gingival hyperplasia [Not Recovered/Not Resolved]
  - Gingival bleeding [Not Recovered/Not Resolved]
  - Gingival oedema [Not Recovered/Not Resolved]
